FAERS Safety Report 22593438 (Version 1)
Quarter: 2023Q2

REPORT INFORMATION
  Report Type: Spontaneous
  Country: CA (occurrence: CA)
  Receive Date: 20230613
  Receipt Date: 20230613
  Transmission Date: 20230722
  Serious: Yes (Other)
  Sender: FDA-Public Use
  Company Number: CA-JNJFOC-20230619932

PATIENT
  Age: 71 Year
  Sex: Male
  Weight: 79 kg

DRUGS (17)
  1. REMICADE [Suspect]
     Active Substance: INFLIXIMAB
     Indication: Colitis ulcerative
     Route: 041
  2. INFLIXIMAB [Suspect]
     Active Substance: INFLIXIMAB
     Indication: Colitis ulcerative
     Route: 042
  3. INFLIXIMAB [Suspect]
     Active Substance: INFLIXIMAB
     Route: 042
  4. INFLIXIMAB [Suspect]
     Active Substance: INFLIXIMAB
     Route: 042
  5. INFLIXIMAB [Suspect]
     Active Substance: INFLIXIMAB
     Route: 042
  6. INFLIXIMAB [Suspect]
     Active Substance: INFLIXIMAB
     Route: 042
  7. INFLIXIMAB [Suspect]
     Active Substance: INFLIXIMAB
     Route: 042
  8. INFLIXIMAB [Suspect]
     Active Substance: INFLIXIMAB
     Route: 042
  9. STELARA [Concomitant]
     Active Substance: USTEKINUMAB
     Route: 058
  10. ASPIRIN [Concomitant]
     Active Substance: ASPIRIN
  11. AMLODIPINE [Concomitant]
     Active Substance: AMLODIPINE BESYLATE
  12. FOLIC ACID [Concomitant]
     Active Substance: FOLIC ACID
  13. LIPITOR [Concomitant]
     Active Substance: ATORVASTATIN CALCIUM
  14. METHOTREXATE [Concomitant]
     Active Substance: METHOTREXATE
     Route: 048
  15. MESALAMINE [Concomitant]
     Active Substance: MESALAMINE
     Dosage: DELAYED AND EXTENDED RELEASE
  16. VALSARTAN [Concomitant]
     Active Substance: VALSARTAN
  17. TICAGRELOR [Concomitant]
     Active Substance: TICAGRELOR

REACTIONS (13)
  - Faecal calprotectin increased [Not Recovered/Not Resolved]
  - Mucous stools [Not Recovered/Not Resolved]
  - Nasopharyngitis [Not Recovered/Not Resolved]
  - Condition aggravated [Not Recovered/Not Resolved]
  - Haemoglobin decreased [Not Recovered/Not Resolved]
  - Pyrexia [Not Recovered/Not Resolved]
  - Diarrhoea [Not Recovered/Not Resolved]
  - Chills [Not Recovered/Not Resolved]
  - Off label use [Not Recovered/Not Resolved]
  - Product use issue [Not Recovered/Not Resolved]
  - Inappropriate schedule of product administration [Not Recovered/Not Resolved]
  - Intentional product use issue [Not Recovered/Not Resolved]
  - Drug ineffective [Not Recovered/Not Resolved]
